FAERS Safety Report 16233723 (Version 1)
Quarter: 2019Q2

REPORT INFORMATION
  Report Type: Spontaneous
  Country: US (occurrence: US)
  Receive Date: 20190423
  Receipt Date: 20190423
  Transmission Date: 20190711
  Serious: Yes (Hospitalization)
  Sender: FDA-Public Use
  Company Number: None

PATIENT
  Age: 61 Year
  Sex: Male

DRUGS (21)
  1. LUNESTA [Concomitant]
     Active Substance: ESZOPICLONE
  2. MAG OX [Concomitant]
     Active Substance: MAGNESIUM OXIDE
  3. METHOCARBAMOL. [Concomitant]
     Active Substance: METHOCARBAMOL
  4. MORPHINE [Concomitant]
     Active Substance: MORPHINE
  5. ATENOLOL. [Concomitant]
     Active Substance: ATENOLOL
  6. CALCITRIOL. [Concomitant]
     Active Substance: CALCITRIOL
  7. DOCUSATE [Concomitant]
     Active Substance: DOCUSATE
  8. REMERON [Concomitant]
     Active Substance: MIRTAZAPINE
  9. CRESTOR [Concomitant]
     Active Substance: ROSUVASTATIN CALCIUM
  10. ZOFRAN [Concomitant]
     Active Substance: ONDANSETRON HYDROCHLORIDE
  11. SYMBICORT [Concomitant]
     Active Substance: BUDESONIDE\FORMOTEROL FUMARATE DIHYDRATE
  12. LUPRON [Concomitant]
     Active Substance: LEUPROLIDE ACETATE
  13. DITROPAN [Concomitant]
     Active Substance: OXYBUTYNIN CHLORIDE
  14. ABIRATERONE ACETATE. [Suspect]
     Active Substance: ABIRATERONE ACETATE
     Indication: PROSTATE CANCER
     Route: 048
     Dates: start: 20190228
  15. TUMS [Concomitant]
     Active Substance: CALCIUM CARBONATE
  16. NITROGLYCERIN. [Concomitant]
     Active Substance: NITROGLYCERIN
  17. METAMUCIL [Concomitant]
     Active Substance: PLANTAGO SEED
  18. FENTANYL. [Concomitant]
     Active Substance: FENTANYL
  19. NASONEX [Concomitant]
     Active Substance: MOMETASONE FUROATE
  20. PREDNISONE. [Concomitant]
     Active Substance: PREDNISONE
  21. ASPIRIN. [Concomitant]
     Active Substance: ASPIRIN

REACTIONS (2)
  - Metastases to bone [None]
  - Osteomyelitis [None]
